FAERS Safety Report 9667863 (Version 2)
Quarter: 2014Q3

REPORT INFORMATION
  Report Type: Spontaneous
  Country: FR (occurrence: FR)
  Receive Date: 20131104
  Receipt Date: 20140924
  Transmission Date: 20150326
  Serious: Yes (Other)
  Sender: FDA-Public Use
  Company Number: FR-PFIZER INC-2013312266

PATIENT
  Sex: Male
  Weight: 3.27 kg

DRUGS (9)
  1. SYNTOCINON [Suspect]
     Active Substance: OXYTOCIN
     Dosage: 3ML/HOUR
     Route: 064
     Dates: start: 20110505, end: 20110505
  2. CYTOTEC [Suspect]
     Active Substance: MISOPROSTOL
     Indication: LABOUR INDUCTION
     Dosage: 50 UG (1/4 TABLET),
     Route: 064
     Dates: start: 20110504
  3. CYTOTEC [Suspect]
     Active Substance: MISOPROSTOL
     Dosage: 50 UG (1/4 TABLET),
     Route: 064
     Dates: start: 20110504
  4. SYNTOCINON [Suspect]
     Active Substance: OXYTOCIN
     Dosage: UNK
  5. NATISPRAY [Concomitant]
     Active Substance: NITROGLYCERIN
     Dosage: 2 PUFFS
     Dates: start: 20110505, end: 20110505
  6. ATARAX [Concomitant]
     Active Substance: HYDROXYZINE\HYDROXYZINE HYDROCHLORIDE
     Dosage: 150 MG
     Route: 064
     Dates: start: 20110505, end: 20110505
  7. FLORADIX FORMULA [Concomitant]
     Route: 064
  8. CEFAZOLIN [Concomitant]
     Active Substance: CEFAZOLIN
     Dosage: 2 G
     Route: 062
     Dates: start: 20110505, end: 20110505
  9. SYNTOCINON [Suspect]
     Active Substance: OXYTOCIN
     Indication: LABOUR INDUCTION
     Dosage: 1.5 ML/HOUR
     Route: 064
     Dates: start: 20110505

REACTIONS (4)
  - Foetal distress syndrome [Recovered/Resolved]
  - Refusal of treatment by patient [None]
  - Maternal exposure during delivery [Unknown]
  - Foetal heart rate disorder [Recovered/Resolved]

NARRATIVE: CASE EVENT DATE: 20110505
